FAERS Safety Report 8016619-5 (Version None)
Quarter: 2011Q4

REPORT INFORMATION
  Report Type: 
  Country: None (occurrence: None)
  Receive Date: 20111231
  Receipt Date: 20111220
  Transmission Date: 20120403
  Serious: Yes (Other)
  Sender: FDA-Public Use
  Company Number: CHPA2011US018400

PATIENT
  Age: 51 Year
  Sex: Female

DRUGS (4)
  1. NICOTINE [Suspect]
     Indication: SMOKING CESSATION THERAPY
     Dosage: 21 MG, ONCE/SINGLE
     Route: 062
     Dates: start: 20111219, end: 20111220
  2. NICOTINE [Suspect]
     Dosage: 21 MG, QD
     Route: 062
     Dates: start: 20030101, end: 20030101
  3. NICOTINE [Suspect]
     Dosage: 7 MG, QD
     Route: 062
     Dates: start: 20030101, end: 20030101
  4. NICOTINE [Suspect]
     Dosage: 14 MG, QD
     Route: 062
     Dates: start: 20030101, end: 20030101

REACTIONS (2)
  - EXPIRED DRUG ADMINISTERED [None]
  - CHRONIC OBSTRUCTIVE PULMONARY DISEASE [None]
